FAERS Safety Report 5131709-2 (Version None)
Quarter: 2006Q4

REPORT INFORMATION
  Report Type: 
  Country: None (occurrence: None)
  Receive Date: 20061016
  Receipt Date: 20061002
  Transmission Date: 20070319
  Serious: Yes (Hospitalization)
  Sender: FDA-Public Use
  Company Number: PHFR2006GB02764

PATIENT
  Sex: Female

DRUGS (1)
  1. LIORESAL [Suspect]
     Route: 037

REACTIONS (1)
  - DEATH [None]
